FAERS Safety Report 9394571 (Version 1)
Quarter: 2013Q3

REPORT INFORMATION
  Report Type: Spontaneous
  Country: DE (occurrence: DE)
  Receive Date: 20130711
  Receipt Date: 20130711
  Transmission Date: 20140515
  Serious: Yes (Death, Other)
  Sender: FDA-Public Use
  Company Number: PHHY2013DE072260

PATIENT
  Sex: 0

DRUGS (9)
  1. CICLOSPORIN [Suspect]
     Indication: PROPHYLAXIS AGAINST GRAFT VERSUS HOST DISEASE
  2. METHOTREXATE [Suspect]
     Indication: PROPHYLAXIS AGAINST GRAFT VERSUS HOST DISEASE
  3. CLOFARABINE [Concomitant]
     Indication: SURGICAL PRECONDITIONING
  4. CYTARABINE [Concomitant]
     Indication: SURGICAL PRECONDITIONING
  5. BUSULFAN [Concomitant]
     Indication: SURGICAL PRECONDITIONING
     Route: 042
  6. CASPOFUNGIN [Concomitant]
     Indication: ANTIFUNGAL PROPHYLAXIS
  7. CYCLOPHOSPHAMIDE [Concomitant]
  8. ANTITHYMOCYTE IMMUNOGLOBULIN [Concomitant]
  9. CIDOFOVIR [Concomitant]
     Indication: ADENOVIRUS INFECTION

REACTIONS (3)
  - Adenovirus infection [Fatal]
  - Chronic graft versus host disease [Unknown]
  - Hepatotoxicity [Unknown]
